FAERS Safety Report 10422593 (Version 2)
Quarter: 2014Q4

REPORT INFORMATION
  Report Type: Spontaneous
  Country: US (occurrence: US)
  Receive Date: 20140901
  Receipt Date: 20141006
  Transmission Date: 20150528
  Serious: No
  Sender: FDA-Public Use
  Company Number: US-009507513-1408USA014497

PATIENT
  Age: 88 Year
  Sex: Female

DRUGS (6)
  1. AZOPT [Concomitant]
     Active Substance: BRINZOLAMIDE
  2. LOVASTATIN. [Concomitant]
     Active Substance: LOVASTATIN
  3. JANUVIA [Suspect]
     Active Substance: SITAGLIPTIN PHOSPHATE
     Indication: DIABETES MELLITUS
     Dosage: 100 MG, QAM
     Route: 048
  4. XOLAIR [Concomitant]
     Active Substance: OMALIZUMAB
  5. GLIMEPIRIDE. [Concomitant]
     Active Substance: GLIMEPIRIDE
  6. METFORMIN [Concomitant]
     Active Substance: METFORMIN HYDROCHLORIDE

REACTIONS (4)
  - Seborrhoea [Unknown]
  - Rash pruritic [Recovered/Resolved]
  - Hypersensitivity [Recovered/Resolved]
  - Urticaria [Recovered/Resolved]

NARRATIVE: CASE EVENT DATE: 201302
